FAERS Safety Report 15602251 (Version 1)
Quarter: 2018Q4

REPORT INFORMATION
  Report Type: Spontaneous
  Country: US (occurrence: US)
  Receive Date: 20181102
  Receipt Date: 20181102
  Transmission Date: 20190205
  Serious: Yes (Other)
  Sender: FDA-Public Use
  Company Number: None

PATIENT
  Age: 40 Year
  Sex: Female
  Weight: 87.75 kg

DRUGS (1)
  1. MONTELUKAST 10 MG [Suspect]
     Active Substance: MONTELUKAST SODIUM
     Indication: ASTHMA
     Dosage: ?          QUANTITY:60 TABLET(S);?
     Route: 048

REACTIONS (5)
  - Product quality issue [None]
  - Headache [None]
  - Product dispensing error [None]
  - Dizziness [None]
  - Wrong product administered [None]

NARRATIVE: CASE EVENT DATE: 20180723
